FAERS Safety Report 8282578-3 (Version None)
Quarter: 2012Q2

REPORT INFORMATION
  Report Type: 
  Country: None (occurrence: None)
  Receive Date: 20120413
  Receipt Date: 20120403
  Transmission Date: 20120825
  Serious: Yes (Death, Other)
  Sender: FDA-Public Use
  Company Number: MX-SANOFI-AVENTIS-2012SA018205

PATIENT
  Age: 64 Year
  Sex: Male

DRUGS (6)
  1. TAXOTERE [Suspect]
     Route: 042
     Dates: start: 20111101, end: 20111102
  2. PREDNISONE TAB [Concomitant]
     Route: 065
     Dates: start: 20111026, end: 20111026
  3. PREDNISONE TAB [Concomitant]
     Route: 065
     Dates: start: 20111101, end: 20111101
  4. TAXOTERE [Suspect]
     Route: 042
     Dates: start: 20111101, end: 20111102
  5. TAXOTERE [Suspect]
     Route: 042
     Dates: start: 20111026, end: 20111026
  6. TAXOTERE [Suspect]
     Route: 042
     Dates: start: 20111026, end: 20111026

REACTIONS (4)
  - PNEUMONITIS [None]
  - RESPIRATORY DISORDER [None]
  - THROMBOCYTOPENIA [None]
  - DEATH [None]
